FAERS Safety Report 20554145 (Version 1)
Quarter: 2022Q1

REPORT INFORMATION
  Report Type: Spontaneous
  Country: CN (occurrence: CN)
  Receive Date: 20220304
  Receipt Date: 20220304
  Transmission Date: 20220423
  Serious: Yes (Other)
  Sender: FDA-Public Use
  Company Number: CN-009507513-2203CHN000759

PATIENT
  Age: 78 Year
  Sex: Male

DRUGS (4)
  1. KEYTRUDA [Suspect]
     Active Substance: PEMBROLIZUMAB
     Indication: Neoplasm
     Dosage: 200 MILLIGRAM, ONCE
     Route: 041
     Dates: start: 20220121, end: 20220121
  2. GEMCITABINE HYDROCHLORIDE [Suspect]
     Active Substance: GEMCITABINE HYDROCHLORIDE
     Indication: Neoplasm
     Dosage: 1.2 GRAM, ONCE
     Route: 041
     Dates: start: 20220121, end: 20220121
  3. INNO.N 0.9% SODIUM CHLORIDE [Concomitant]
     Dosage: 100 ML, ONCE
     Route: 041
     Dates: start: 20220121, end: 20220121
  4. INNO.N 0.9% SODIUM CHLORIDE [Concomitant]
     Dosage: 50 ML, ONCE
     Route: 041
     Dates: start: 20220121, end: 20220121

REACTIONS (1)
  - White blood cell count decreased [Recovering/Resolving]

NARRATIVE: CASE EVENT DATE: 20220125
